FAERS Safety Report 5857192-7 (Version None)
Quarter: 2008Q3

REPORT INFORMATION
  Report Type: 
  Country: None (occurrence: None)
  Receive Date: 20080825
  Receipt Date: 20080812
  Transmission Date: 20090109
  Serious: Yes (Hospitalization, Other)
  Sender: FDA-Public Use
  Company Number: IE-AMGEN-UK267799

PATIENT
  Sex: Male
  Weight: 70 kg

DRUGS (19)
  1. PANITUMUMAB [Suspect]
     Indication: SQUAMOUS CELL CARCINOMA
     Route: 042
     Dates: start: 20080221, end: 20080221
  2. FLUOROURACIL [Suspect]
     Route: 042
     Dates: start: 20080220
  3. CISPLATIN [Concomitant]
     Route: 042
     Dates: start: 20080220
  4. ASPIRIN [Concomitant]
     Route: 048
     Dates: start: 20060401
  5. BISOPROLOL FUMARATE [Concomitant]
     Route: 048
     Dates: start: 20060401
  6. AMLODIPINE [Concomitant]
     Route: 048
     Dates: start: 20060401
  7. MORPHINE SULFATE [Concomitant]
     Route: 048
     Dates: start: 20070701
  8. CITALOPRAM HYDROBROMIDE [Concomitant]
     Route: 048
     Dates: start: 20070901
  9. LANSOPRAZOLE [Concomitant]
     Route: 048
     Dates: start: 20080101
  10. ATORVASTATIN [Concomitant]
     Route: 048
     Dates: start: 20060101
  11. DUPHALAC [Concomitant]
     Route: 048
     Dates: start: 20070912
  12. LOVAZA [Concomitant]
     Route: 048
     Dates: start: 20060101
  13. ARACHIS OIL [Concomitant]
     Route: 048
     Dates: start: 20070101
  14. NUTRITIONAL AGENTS AND VITAMINS [Concomitant]
     Route: 048
     Dates: start: 20070101
  15. DIFFLAM [Concomitant]
     Route: 061
     Dates: start: 20070901
  16. MYCOSTATIN [Concomitant]
     Route: 048
     Dates: start: 20080215
  17. EMEND [Concomitant]
     Route: 048
     Dates: start: 20080221
  18. DEXAMETHASONE TAB [Concomitant]
     Route: 048
     Dates: start: 20080222
  19. MOTILIUM [Concomitant]
     Route: 048
     Dates: start: 20080222

REACTIONS (4)
  - DIARRHOEA [None]
  - MUCOSAL INFLAMMATION [None]
  - NEUTROPENIA [None]
  - SYNCOPE [None]
